FAERS Safety Report 20743869 (Version 1)
Quarter: 2022Q2

REPORT INFORMATION
  Report Type: Spontaneous
  Country: US (occurrence: None)
  Receive Date: 20220422
  Receipt Date: 20220422
  Transmission Date: 20220721
  Serious: Yes (Other)
  Sender: FDA-Public Use
  Company Number: None

PATIENT
  Sex: Female

DRUGS (10)
  1. ENBREL [Suspect]
     Active Substance: ETANERCEPT
     Indication: Psoriatic arthropathy
     Route: 058
     Dates: start: 20171006
  2. BUPROPION [Concomitant]
     Active Substance: BUPROPION
  3. CYCLOBENAZPR [Concomitant]
  4. CYMBALTA [Concomitant]
  5. EXFORGE [Concomitant]
  6. FOLIC ACID [Concomitant]
  7. ACETAMINOPHEN\HYDROCODONE [Concomitant]
     Active Substance: ACETAMINOPHEN\HYDROCODONE
  8. MELOXICAM [Concomitant]
  9. METHOTREXATE [Concomitant]
  10. PREDNISONE [Concomitant]

REACTIONS (3)
  - Hepatic steatosis [None]
  - Psoriasis [None]
  - Pain [None]
